FAERS Safety Report 8808925 (Version 1)
Quarter: 2012Q4

REPORT INFORMATION
  Report Type: 
  Country: US (occurrence: US)
  Receive Date: 20120926
  Receipt Date: 20120926
  Transmission Date: 20130627
  Serious: Yes (Hospitalization)
  Sender: FDA-Public Use
  Company Number: US-ASTELLAS-2012US007970

PATIENT
  Age: 54 Year
  Sex: Male

DRUGS (1)
  1. PROGRAF [Suspect]
     Indication: LUNG TRANSPLANT
     Dosage: 1 mg, bid
     Route: 048
     Dates: start: 20100706

REACTIONS (3)
  - Off label use [Unknown]
  - Cystic fibrosis [Recovering/Resolving]
  - Intestinal obstruction [Recovering/Resolving]
